FAERS Safety Report 8534235-3 (Version None)
Quarter: 2012Q3

REPORT INFORMATION
  Report Type: 
  Country: None (occurrence: None)
  Receive Date: 20120724
  Receipt Date: 20120719
  Transmission Date: 20120928
  Serious: Yes (Other)
  Sender: FDA-Public Use
  Company Number: IT-ROXANE LABORATORIES, INC.-2012-RO-01567RO

PATIENT
  Age: 58 Year
  Sex: Female
  Weight: 70 kg

DRUGS (4)
  1. ANASTROZOLE [Suspect]
     Indication: BREAST CANCER
  2. VITAMIN D [Suspect]
     Dosage: 400 U
  3. CALCIUM CARBONATE [Suspect]
     Dosage: 1000 MG
  4. ANASTROZOLE [Suspect]
     Indication: ADJUVANT THERAPY
     Dosage: 1 MG
     Dates: start: 20120701

REACTIONS (3)
  - BREAST CANCER [None]
  - ARTHRALGIA [None]
  - OSTEOPENIA [None]
